FAERS Safety Report 7509954-8 (Version None)
Quarter: 2011Q2

REPORT INFORMATION
  Report Type: 
  Country: None (occurrence: None)
  Receive Date: 20110527
  Receipt Date: 20110516
  Transmission Date: 20111010
  Serious: Yes (Hospitalization)
  Sender: FDA-Public Use
  Company Number: DE-JNJFOC-20080501802

PATIENT
  Sex: Male
  Weight: 68 kg

DRUGS (8)
  1. INFLIXIMAB [Suspect]
     Route: 042
     Dates: start: 20060726
  2. HUMIRA [Suspect]
     Indication: CROHN'S DISEASE
     Dates: start: 20070215
  3. PREDNISOLONE [Suspect]
     Dates: start: 20030302
  4. PREDNISOLONE [Suspect]
     Indication: PRODUCT USED FOR UNKNOWN INDICATION
     Dates: start: 20070320, end: 20070510
  5. INFLIXIMAB [Suspect]
     Indication: CROHN'S DISEASE
     Route: 042
     Dates: start: 20060118
  6. INFLIXIMAB [Suspect]
     Dosage: 1ST DOSE
     Route: 042
     Dates: start: 20050621
  7. METRONIDAZOLE [Suspect]
     Indication: PRODUCT USED FOR UNKNOWN INDICATION
     Dates: start: 20070320, end: 20070403
  8. HUMIRA [Suspect]
     Dates: end: 20070309

REACTIONS (1)
  - ENTEROVESICAL FISTULA [None]
